FAERS Safety Report 5232073-0 (Version None)
Quarter: 2007Q1

REPORT INFORMATION
  Report Type: 
  Country: None (occurrence: None)
  Receive Date: 20070205
  Receipt Date: 20070123
  Transmission Date: 20070707
  Serious: Yes (Hospitalization)
  Sender: FDA-Public Use
  Company Number: B0456307A

PATIENT
  Age: 51 Year
  Sex: Male

DRUGS (2)
  1. LITHIUM CARBONATE [Suspect]
     Indication: BIPOLAR DISORDER
  2. HALOPERIDOL [Concomitant]

REACTIONS (12)
  - COORDINATION ABNORMAL [None]
  - DEPRESSED LEVEL OF CONSCIOUSNESS [None]
  - DYSARTHRIA [None]
  - ENCEPHALOPATHY [None]
  - EPILEPSY [None]
  - HYPERREFLEXIA [None]
  - LETHARGY [None]
  - MUSCLE RIGIDITY [None]
  - MUTISM [None]
  - MYOCLONUS [None]
  - THERAPEUTIC AGENT TOXICITY [None]
  - TREMOR [None]
